FAERS Safety Report 6965222-4 (Version None)
Quarter: 2010Q3

REPORT INFORMATION
  Report Type: 
  Country: None (occurrence: None)
  Receive Date: 20100903
  Receipt Date: 20100823
  Transmission Date: 20110219
  Serious: Yes (Hospitalization)
  Sender: FDA-Public Use
  Company Number: PHHY2010US55743

PATIENT
  Sex: Female
  Weight: 85.5 kg

DRUGS (1)
  1. EXJADE [Suspect]
     Indication: SICKLE CELL ANAEMIA
     Dosage: 1500 MG, DAILY
     Route: 048

REACTIONS (3)
  - DIZZINESS [None]
  - OXYGEN SATURATION DECREASED [None]
  - URINARY TRACT INFECTION [None]
